FAERS Safety Report 22804781 (Version 3)
Quarter: 2024Q2

REPORT INFORMATION
  Report Type: Report from Study
  Country: US (occurrence: US)
  Receive Date: 20230809
  Receipt Date: 20240611
  Transmission Date: 20240716
  Serious: Yes (Hospitalization)
  Sender: FDA-Public Use
  Company Number: US-ABBVIE-5359114

PATIENT
  Sex: Female

DRUGS (3)
  1. HUMIRA [Suspect]
     Active Substance: ADALIMUMAB
     Indication: Rheumatoid arthritis
     Dosage: FORM STRENGTH 40 MILLIGRAM?CITRATE FREE?START DATE 2023
     Route: 058
  2. HUMIRA [Suspect]
     Active Substance: ADALIMUMAB
     Dosage: FORM STRENGTH 40 MILLIGRAM?CITRATE FREE?LAST ADMIN DATE SHOULD BE 2023
     Route: 058
     Dates: start: 20230111
  3. METHOTREXATE [Concomitant]
     Active Substance: METHOTREXATE
     Indication: Product used for unknown indication

REACTIONS (14)
  - Gastrointestinal inflammation [Recovered/Resolved]
  - White blood cell count increased [Not Recovered/Not Resolved]
  - Liver function test increased [Unknown]
  - Abdominal distension [Unknown]
  - Unevaluable event [Unknown]
  - Therapeutic product effect incomplete [Not Recovered/Not Resolved]
  - Primary hyperaldosteronism [Unknown]
  - Rheumatoid arthritis [Not Recovered/Not Resolved]
  - Joint swelling [Not Recovered/Not Resolved]
  - Unevaluable event [Unknown]
  - Joint range of motion decreased [Not Recovered/Not Resolved]
  - Alanine aminotransferase increased [Not Recovered/Not Resolved]
  - Aspartate aminotransferase increased [Not Recovered/Not Resolved]
  - Pain [Unknown]

NARRATIVE: CASE EVENT DATE: 20230101
